FAERS Safety Report 6054894-7 (Version None)
Quarter: 2009Q1

REPORT INFORMATION
  Report Type: 
  Country: None (occurrence: None)
  Receive Date: 20090128
  Receipt Date: 20090119
  Transmission Date: 20090719
  Serious: Yes (Hospitalization)
  Sender: FDA-Public Use
  Company Number: PHHY2009MX02218

PATIENT
  Age: 67 Year
  Sex: Female
  Weight: 153 kg

DRUGS (2)
  1. DIOVAN HCT [Suspect]
     Indication: HYPERTENSION
     Dosage: 160/25 MG, 1 DF/DAY
     Route: 048
     Dates: start: 20050101, end: 20090101
  2. DIOVAN HCT [Suspect]
     Dosage: 160/25 MG, HALF DF/DAY
     Route: 048
     Dates: start: 20090101

REACTIONS (5)
  - ANKLE FRACTURE [None]
  - FIBULA FRACTURE [None]
  - HYPOTENSION [None]
  - ORTHOPEDIC PROCEDURE [None]
  - VARICOSE ULCERATION [None]
